FAERS Safety Report 4422132-4 (Version None)
Quarter: 2004Q3

REPORT INFORMATION
  Report Type: 
  Country: None (occurrence: None)
  Receive Date: 20040806
  Receipt Date: 20040728
  Transmission Date: 20050211
  Serious: Yes (Death)
  Sender: FDA-Public Use
  Company Number: 2004-07-1652

PATIENT
  Age: 47 Year
  Sex: Female

DRUGS (2)
  1. INTERFERON ALFA-2B INJECTABLE [Suspect]
  2. THALOMID [Suspect]
     Indication: MALIGNANT MELANOMA
     Dosage: 200 MG HS ORAL
     Route: 048
     Dates: start: 20020901, end: 20030101

REACTIONS (1)
  - CEREBRAL HAEMORRHAGE [None]
